FAERS Safety Report 21067026 (Version 1)
Quarter: 2022Q3

REPORT INFORMATION
  Report Type: Spontaneous
  Country: US (occurrence: US)
  Receive Date: 20220712
  Receipt Date: 20220712
  Transmission Date: 20221027
  Serious: No
  Sender: FDA-Public Use
  Company Number: US-CIPLA LTD.-2022US01879

PATIENT
  Sex: Male

DRUGS (1)
  1. TESTOSTERONE [Suspect]
     Active Substance: TESTOSTERONE
     Indication: Product used for unknown indication
     Dosage: 1.5ML I.E, 300MG, UNK
     Route: 065
     Dates: start: 2022

REACTIONS (3)
  - Joint lock [Unknown]
  - Injection related reaction [Unknown]
  - Product deposit [Unknown]

NARRATIVE: CASE EVENT DATE: 20220301
